FAERS Safety Report 12223949 (Version 13)
Quarter: 2016Q4

REPORT INFORMATION
  Report Type: Report from Study
  Country: CN (occurrence: CN)
  Receive Date: 20160330
  Receipt Date: 20161226
  Transmission Date: 20170207
  Serious: Yes (Death, Life-Threatening, Hospitalization, Other)
  Sender: FDA-Public Use
  Company Number: CN-GILEAD-2016-0203737

PATIENT
  Age: 59 Year
  Sex: Female
  Weight: 62 kg

DRUGS (16)
  1. BIAPENEM [Concomitant]
     Active Substance: BIAPENEM
     Indication: ANTI-INFECTIVE THERAPY
     Dosage: UNK
     Dates: start: 2016, end: 20160426
  2. SOFOSBUVIR [Suspect]
     Active Substance: SOFOSBUVIR
     Dosage: 400 MG, QD
     Route: 048
     Dates: start: 20150828, end: 20151119
  3. SODIUM FOLINATE [Concomitant]
     Active Substance: LEUCOVORIN
     Indication: ANTI-INFECTIVE THERAPY
     Dosage: UNK
     Dates: start: 20160726, end: 2016
  4. TEICOPLANIN [Concomitant]
     Active Substance: TEICOPLANIN
     Indication: INFLAMMATION
     Dosage: UNK
     Dates: start: 20161031, end: 20161102
  5. CEFOPERAZONE SODIUM [Concomitant]
     Active Substance: CEFOPERAZONE SODIUM
     Indication: ANTI-INFECTIVE THERAPY
     Dosage: UNK
     Dates: start: 20161103, end: 201611
  6. VORICONAZOLE. [Concomitant]
     Active Substance: VORICONAZOLE
     Indication: ANTI-INFECTIVE THERAPY
     Dosage: UNK
     Dates: start: 20161031, end: 201611
  7. PEGINTERFERON ALFA-2A [Suspect]
     Active Substance: PEGINTERFERON ALFA-2A
     Indication: HEPATITIS C
     Dosage: 180 MG, Q1WK
     Route: 058
     Dates: start: 20150827, end: 20151119
  8. LATAMOXEF [Concomitant]
     Active Substance: LATAMOXEF
     Indication: ANTI-INFECTIVE THERAPY
     Dosage: UNK
     Dates: start: 201607, end: 2016
  9. TEICOPLANIN [Concomitant]
     Active Substance: TEICOPLANIN
     Indication: B-CELL TYPE ACUTE LEUKAEMIA
     Dosage: UNK
     Route: 065
     Dates: start: 20160426, end: 2016
  10. RIBAVIRIN. [Suspect]
     Active Substance: RIBAVIRIN
     Indication: HEPATITIS C
     Dosage: 1000 MG, BID
     Route: 048
     Dates: start: 20150827, end: 20151119
  11. BIAPENEM [Concomitant]
     Active Substance: BIAPENEM
     Indication: B-CELL TYPE ACUTE LEUKAEMIA
     Dosage: UNK
     Dates: start: 20161031, end: 20161102
  12. CYTARABINE. [Concomitant]
     Active Substance: CYTARABINE
     Dosage: 0.15 G, UNK
  13. TAZOBACTAM SODIUM [Concomitant]
     Active Substance: TAZOBACTAM SODIUM
     Indication: ANTI-INFECTIVE THERAPY
     Dosage: UNK
     Dates: start: 20161103, end: 201611
  14. CYCLOPHOSPHAMIDE. [Concomitant]
     Active Substance: CYCLOPHOSPHAMIDE
     Dosage: 1.13 G, ONCE
  15. SOFOSBUVIR [Suspect]
     Active Substance: SOFOSBUVIR
     Indication: HEPATITIS C
     Dosage: 400 MG, QD
     Route: 048
     Dates: start: 20150827, end: 20150827
  16. ORNIDAZOLE [Concomitant]
     Active Substance: ORNIDAZOLE
     Indication: ANTI-INFECTIVE THERAPY
     Dosage: UNK
     Dates: start: 20161031, end: 201611

REACTIONS (3)
  - Pyrexia [Recovered/Resolved]
  - B-cell type acute leukaemia [Fatal]
  - Thrombocytopenia [Fatal]

NARRATIVE: CASE EVENT DATE: 20160312
